FAERS Safety Report 20583566 (Version 1)
Quarter: 2022Q1

REPORT INFORMATION
  Report Type: Report from Study
  Country: US (occurrence: US)
  Receive Date: 20220311
  Receipt Date: 20220311
  Transmission Date: 20220423
  Serious: Yes (Hospitalization)
  Sender: FDA-Public Use
  Company Number: US-UPSHER-SMITH LABORATORIES, LLC-2022USL00151

PATIENT
  Sex: Female

DRUGS (2)
  1. VIGADRONE [Suspect]
     Active Substance: VIGABATRIN
     Dosage: UNK
     Dates: end: 20220223
  2. VIGADRONE [Suspect]
     Active Substance: VIGABATRIN
     Dosage: 2 ML, 2X/DAY
     Dates: start: 20220224

REACTIONS (4)
  - Unresponsive to stimuli [Recovered/Resolved]
  - Cyanosis [Recovered/Resolved]
  - Hypotonia [Recovered/Resolved]
  - Somnolence [Not Recovered/Not Resolved]

NARRATIVE: CASE EVENT DATE: 20220201
